FAERS Safety Report 24393498 (Version 1)
Quarter: 2024Q4

REPORT INFORMATION
  Report Type: Report from Study
  Country: CN (occurrence: CN)
  Receive Date: 20241003
  Receipt Date: 20241003
  Transmission Date: 20250115
  Serious: Yes (Hospitalization, Other)
  Sender: ELI LILLY AND CO
  Company Number: CN-ELI_LILLY_AND_COMPANY-CN202409006719

PATIENT
  Age: 80 Year
  Sex: Male

DRUGS (2)
  1. CYRAMZA [Suspect]
     Active Substance: RAMUCIRUMAB
     Indication: Gastric cancer
     Dosage: 500 MG, OTHER (ONCE EVERY 15 DAYS)
     Route: 065
     Dates: start: 202407
  2. SERPLULIMAB [Concomitant]
     Active Substance: SERPLULIMAB
     Indication: Gastric cancer
     Dosage: UNK UNK, OTHER (ONCE EVERY 15 DAYS)
     Route: 065
     Dates: start: 202407

REACTIONS (6)
  - Gait inability [Not Recovered/Not Resolved]
  - Ascites [Not Recovered/Not Resolved]
  - Blood albumin decreased [Unknown]
  - Blood potassium decreased [Unknown]
  - Abdominal distension [Unknown]
  - Peripheral swelling [Recovering/Resolving]
